FAERS Safety Report 9144323 (Version 1)
Quarter: 2013Q1

REPORT INFORMATION
  Report Type: Spontaneous
  Country: FR (occurrence: FR)
  Receive Date: 20130306
  Receipt Date: 20130306
  Transmission Date: 20140127
  Serious: Yes (Death, Life-Threatening, Hospitalization)
  Sender: FDA-Public Use
  Company Number: FR-ROCHE-1196686

PATIENT
  Age: 81 Year
  Sex: Male

DRUGS (12)
  1. LUCENTIS [Suspect]
     Indication: AGE-RELATED MACULAR DEGENERATION
     Dosage: 1 DF
     Route: 050
     Dates: start: 20071217
  2. LUCENTIS [Suspect]
     Dosage: 1 DF
     Route: 050
     Dates: start: 20080114
  3. LUCENTIS [Suspect]
     Dosage: 1 DF
     Route: 050
     Dates: start: 20080313
  4. LUCENTIS [Suspect]
     Dosage: 1 DF
     Route: 050
     Dates: start: 20081215
  5. HYDROCHLOROTHIAZIDE [Concomitant]
  6. LOSARTAN POTASSIUM [Concomitant]
  7. DOLIPRANE [Concomitant]
  8. GARDENAL [Concomitant]
  9. TORENTAL [Concomitant]
  10. TRANDATE [Concomitant]
  11. PLAVIX [Concomitant]
  12. CACIT VITAMINE D3 [Concomitant]

REACTIONS (1)
  - Myocardial infarction [Fatal]
